FAERS Safety Report 25930395 (Version 1)
Quarter: 2025Q4

REPORT INFORMATION
  Report Type: Spontaneous
  Country: US (occurrence: None)
  Receive Date: 20251015
  Receipt Date: 20251015
  Transmission Date: 20260117
  Serious: Yes (unspecified)
  Sender: FDA-CTU
  Company Number: None

PATIENT
  Age: 58 Year
  Sex: Female
  Weight: 63.9 kg

DRUGS (7)
  1. STEM CELL, EXOSOME, OR GROWTH FACTOR DERIVED UNAPPROVED PRODUCTS [Suspect]
     Active Substance: STEM CELL, EXOSOME, OR GROWTH FACTOR DERIVED UNAPPROVED PRODUCTS
  2. ESTROGENS [Concomitant]
     Active Substance: ESTROGENS
  3. PROGESTERONE [Concomitant]
     Active Substance: PROGESTERONE
  4. UNSPECIFIED INGREDIENT [Concomitant]
     Active Substance: UNSPECIFIED INGREDIENT
  5. VITAMINS [Concomitant]
     Active Substance: VITAMINS
  6. FISH OIL [Concomitant]
     Active Substance: FISH OIL
  7. B3 [Concomitant]

REACTIONS (2)
  - Product use in unapproved indication [None]
  - Joint injury [None]

NARRATIVE: CASE EVENT DATE: 20241119
